FAERS Safety Report 6960658-X (Version None)
Quarter: 2010Q3

REPORT INFORMATION
  Report Type: 
  Country: None (occurrence: None)
  Receive Date: 20100901
  Receipt Date: 20100820
  Transmission Date: 20110219
  Serious: Yes (Hospitalization)
  Sender: FDA-Public Use
  Company Number: PL-PFIZER INC-2010105668

PATIENT
  Age: 28 Year
  Sex: Female
  Weight: 118 kg

DRUGS (5)
  1. CLINDAMYCIN HCL [Suspect]
     Indication: OVARIAN CYST
     Dosage: UNK
     Route: 048
     Dates: start: 20091217, end: 20091226
  2. FLUCONAZOLE [Concomitant]
  3. MACMIROR [Concomitant]
  4. DUPHASTON [Concomitant]
  5. BUTAPIRAZOL [Concomitant]

REACTIONS (4)
  - DERMATITIS EXFOLIATIVE [None]
  - DIARRHOEA [None]
  - PRURITUS [None]
  - PYREXIA [None]
